FAERS Safety Report 4637049-X (Version None)
Quarter: 2005Q2

REPORT INFORMATION
  Report Type: 
  Country: None (occurrence: None)
  Receive Date: 20050328
  Receipt Date: 20041210
  Transmission Date: 20051028
  Serious: No
  Sender: FDA-Public Use
  Company Number: USA041285847

PATIENT
  Age: 49 Year
  Sex: Male
  Weight: 135 kg

DRUGS (7)
  1. STRATTERA [Suspect]
     Dosage: 40 MG DAY
     Dates: start: 20041209
  2. ATACAND [Concomitant]
  3. FLUTICASONE PROPIONATE W/SALMETEROL [Concomitant]
  4. HYDROCHLOROTHIAZIDE [Concomitant]
  5. ALBUTEROL [Concomitant]
  6. ZYRTEC [Concomitant]
  7. FLONASE [Concomitant]

REACTIONS (3)
  - DYSGEUSIA [None]
  - FEELING JITTERY [None]
  - NERVOUSNESS [None]
